FAERS Safety Report 5335382-X (Version None)
Quarter: 2007Q2

REPORT INFORMATION
  Report Type: 
  Country: None (occurrence: None)
  Receive Date: 20070525
  Receipt Date: 20070516
  Transmission Date: 20071010
  Serious: Yes (Hospitalization)
  Sender: FDA-Public Use
  Company Number: JP-PFIZER INC-2007039942

PATIENT
  Age: 77 Year
  Sex: Male

DRUGS (9)
  1. CABASER [Suspect]
     Indication: PARKINSON'S DISEASE
     Dates: start: 20070222, end: 20070515
  2. MADOPAR [Concomitant]
  3. LAXOBERON [Concomitant]
  4. ASPIRIN [Concomitant]
  5. DOMPERIDONE [Concomitant]
  6. VALSARTAN [Concomitant]
  7. BUP-4 [Concomitant]
  8. HARNAL [Concomitant]
  9. ALOSENN [Concomitant]

REACTIONS (1)
  - PNEUMONIA [None]
